APPROVED DRUG PRODUCT: VENTOLIN
Active Ingredient: ALBUTEROL SULFATE
Strength: EQ 4MG BASE
Dosage Form/Route: TABLET;ORAL
Application: N019112 | Product #002
Applicant: GLAXOSMITHKLINE
Approved: Jul 10, 1986 | RLD: No | RS: No | Type: DISCN